FAERS Safety Report 5830605-2 (Version None)
Quarter: 2008Q3

REPORT INFORMATION
  Report Type: 
  Country: None (occurrence: None)
  Receive Date: 20080801
  Receipt Date: 20070810
  Transmission Date: 20090109
  Serious: No
  Sender: FDA-Public Use
  Company Number: US-BRISTOL-MYERS SQUIBB COMPANY-13875026

PATIENT
  Age: 43 Year
  Sex: Female
  Weight: 88 kg

DRUGS (6)
  1. COUMADIN [Suspect]
     Route: 048
     Dates: start: 20070808
  2. PHENYTEK [Concomitant]
  3. LIPITOR [Concomitant]
  4. TOPAMAX [Concomitant]
  5. INSULIN INSULATARD NPH NORDISK [Concomitant]
  6. ALLEGRA [Concomitant]

REACTIONS (1)
  - ABDOMINAL PAIN [None]
